FAERS Safety Report 8824640 (Version 33)
Quarter: 2015Q3

REPORT INFORMATION
  Report Type: Report from Study
  Country: CA (occurrence: CA)
  Receive Date: 20121004
  Receipt Date: 20150813
  Transmission Date: 20151125
  Serious: Yes (Death, Hospitalization, Other)
  Sender: FDA-Public Use
  Company Number: PHHY2012CA045951

PATIENT
  Age: 83 Year
  Sex: Female

DRUGS (3)
  1. SANDOSTATIN LAR DEPOT [Suspect]
     Active Substance: OCTREOTIDE ACETATE
     Dosage: 60 MG, EVERY 3 WEEKS
     Route: 030
  2. SANDOSTATIN LAR DEPOT [Suspect]
     Active Substance: OCTREOTIDE ACETATE
     Dosage: 60 MG, QMO
     Route: 030
  3. SANDOSTATIN LAR DEPOT [Suspect]
     Active Substance: OCTREOTIDE ACETATE
     Indication: CARCINOID TUMOUR
     Dosage: 60 MG, EVERY 3 WEEKS
     Route: 030
     Dates: start: 20071115

REACTIONS (29)
  - Pneumonia [Unknown]
  - Blood pressure systolic increased [Unknown]
  - Arthralgia [Unknown]
  - Blood pressure fluctuation [Unknown]
  - Malaise [Unknown]
  - Dehydration [Unknown]
  - Erythema [Unknown]
  - Pruritus [Unknown]
  - Blood pressure increased [Unknown]
  - Back pain [Unknown]
  - Pain [Unknown]
  - Asthenia [Unknown]
  - Breast pain [Unknown]
  - Malaise [Recovered/Resolved]
  - Wrist fracture [Unknown]
  - Hypoaesthesia [Unknown]
  - Death [Fatal]
  - Fall [Unknown]
  - Depression [Unknown]
  - Confusional state [Unknown]
  - Weight decreased [Unknown]
  - Dizziness [Unknown]
  - Pleural effusion [Unknown]
  - Mastitis [Unknown]
  - Blood pressure diastolic decreased [Unknown]
  - Diarrhoea [Unknown]
  - Body temperature decreased [Unknown]
  - Paraesthesia [Unknown]
  - Injection site pain [Unknown]

NARRATIVE: CASE EVENT DATE: 20130903
